FAERS Safety Report 4729393-2 (Version None)
Quarter: 2005Q3

REPORT INFORMATION
  Report Type: 
  Country: None (occurrence: None)
  Receive Date: 20050728
  Receipt Date: 20050720
  Transmission Date: 20060218
  Serious: Yes (Other)
  Sender: FDA-Public Use
  Company Number: ZICO001247

PATIENT
  Sex: Female

DRUGS (1)
  1. PRIALT [Suspect]
     Dosage: 0.15 MCG.HR INTRATHECAL
     Route: 037
     Dates: start: 20050515, end: 20050701

REACTIONS (4)
  - ANOREXIA [None]
  - CONFUSIONAL STATE [None]
  - ORAL INTAKE REDUCED [None]
  - WEIGHT DECREASED [None]
